FAERS Safety Report 9275095 (Version 2)
Quarter: 2013Q3

REPORT INFORMATION
  Report Type: Spontaneous
  Country: BR (occurrence: BR)
  Receive Date: 20130507
  Receipt Date: 20130801
  Transmission Date: 20140515
  Serious: Yes (Other)
  Sender: FDA-Public Use
  Company Number: PHHY2013BR044156

PATIENT
  Age: 9 Year
  Sex: Male

DRUGS (3)
  1. ANAFRANIL [Suspect]
     Indication: PHOBIA
     Dosage: 1 DF, QHS (25 MG)
     Route: 048
     Dates: start: 200909, end: 201303
  2. ANAFRANIL [Suspect]
     Dosage: 2 DF, (50 MG) DAILY
     Route: 048
     Dates: start: 201203
  3. RITALIN [Suspect]
     Indication: PSYCHOMOTOR HYPERACTIVITY
     Dosage: 1.5 DF, DAILY
     Route: 048
     Dates: start: 201002

REACTIONS (9)
  - Tooth loss [Unknown]
  - Aphagia [Recovered/Resolved]
  - Formication [Recovered/Resolved]
  - Muscle spasms [Recovered/Resolved]
  - Abasia [Recovered/Resolved]
  - Learning disorder [Unknown]
  - Weight decreased [Recovered/Resolved]
  - Fear of eating [Recovered/Resolved]
  - Wrong technique in drug usage process [Unknown]
